FAERS Safety Report 23329139 (Version 1)
Quarter: 2023Q4

REPORT INFORMATION
  Report Type: Spontaneous
  Country: US (occurrence: US)
  Receive Date: 20231222
  Receipt Date: 20231222
  Transmission Date: 20240110
  Serious: Yes (Other)
  Sender: FDA-Public Use
  Company Number: US-BROWN + BURK(UK) LIMITED-ML2023-06580

PATIENT
  Age: 65 Year
  Sex: Female

DRUGS (1)
  1. DORZOLAMIDE\TIMOLOL [Suspect]
     Active Substance: DORZOLAMIDE\TIMOLOL
     Indication: Ocular discomfort
     Dosage: STRENGTH: 22.3 MG/6.8 MG PER ML
     Route: 047

REACTIONS (5)
  - Eye infection [Unknown]
  - Visual impairment [Unknown]
  - Ocular hyperaemia [Recovering/Resolving]
  - Eye pain [Recovering/Resolving]
  - Headache [Recovering/Resolving]

NARRATIVE: CASE EVENT DATE: 20230101
